FAERS Safety Report 5211382-5 (Version None)
Quarter: 2006Q4

REPORT INFORMATION
  Report Type: 
  Country: None (occurrence: None)
  Receive Date: 20061130
  Receipt Date: 20060817
  Transmission Date: 20070319
  Serious: Yes (Hospitalization, Other)
  Sender: FDA-Public Use
  Company Number: WAES 0608USA04200

PATIENT
  Age: 75 Year
  Sex: Female
  Weight: 70.7611 kg

DRUGS (1)
  1. FOSAMAX [Suspect]
     Indication: OSTEOPOROSIS
     Dosage: 70 MG/WKY/PO
     Route: 048
     Dates: start: 20021024, end: 20060701

REACTIONS (2)
  - OSTEONECROSIS [None]
  - PAIN IN JAW [None]
